FAERS Safety Report 21458414 (Version 1)
Quarter: 2022Q4

REPORT INFORMATION
  Report Type: Spontaneous
  Country: FR (occurrence: FR)
  Receive Date: 20221014
  Receipt Date: 20221014
  Transmission Date: 20230112
  Serious: Yes (Other)
  Sender: FDA-Public Use
  Company Number: None

PATIENT
  Age: 38 Year
  Sex: Female

DRUGS (5)
  1. METHOTREXATE SODIUM [Suspect]
     Active Substance: METHOTREXATE SODIUM
     Dosage: 15 MG, WEEKLY
     Route: 048
     Dates: start: 20211202, end: 20220901
  2. BROMAZEPAM [Concomitant]
     Active Substance: BROMAZEPAM
     Indication: Psoriasis
     Dosage: UNK
     Route: 048
     Dates: start: 20211109
  3. FOLIC ACID [Concomitant]
     Active Substance: FOLIC ACID
     Dosage: 1 DF, 1X/DAY
     Route: 048
     Dates: start: 20201217
  4. ENSTILAR [Concomitant]
     Active Substance: BETAMETHASONE DIPROPIONATE\CALCIPOTRIENE HYDRATE
     Dosage: 2 DF, WEEKLY
     Route: 061
  5. CLOBEX [CLOBETASOL PROPIONATE] [Concomitant]
     Dosage: 2 DF, WEEKLY
     Route: 061

REACTIONS (1)
  - Hepatic cytolysis [Unknown]

NARRATIVE: CASE EVENT DATE: 20220830
